FAERS Safety Report 7243517-7 (Version None)
Quarter: 2011Q1

REPORT INFORMATION
  Report Type: 
  Country: None (occurrence: None)
  Receive Date: 20110125
  Receipt Date: 20110114
  Transmission Date: 20110831
  Serious: Yes (Other)
  Sender: FDA-Public Use
  Company Number: FR-JNJFOC-20110100806

PATIENT
  Age: 19 Year
  Sex: Male
  Weight: 51 kg

DRUGS (8)
  1. REMICADE [Suspect]
     Route: 042
  2. REMICADE [Suspect]
     Route: 042
  3. PREDNISONE [Concomitant]
  4. RUBOZINC [Concomitant]
     Dosage: DOASE ^2 DF DAILY^
  5. REMICADE [Suspect]
     Indication: BRONCHIOLITIS
     Route: 042
  6. REMICADE [Suspect]
     Indication: CROHN'S DISEASE
     Route: 042
  7. TRAMADOL [Concomitant]
  8. SERETIDE [Concomitant]

REACTIONS (5)
  - INFUSION RELATED REACTION [None]
  - HEART RATE INCREASED [None]
  - VOMITING [None]
  - ANAPHYLACTIC REACTION [None]
  - ERYTHEMA [None]
